FAERS Safety Report 9022194 (Version 1)
Quarter: 2013Q1

REPORT INFORMATION
  Report Type: Spontaneous
  Country: US (occurrence: US)
  Receive Date: 20130118
  Receipt Date: 20130118
  Transmission Date: 20140127
  Serious: No
  Sender: FDA-Public Use
  Company Number: US-SANOFI-AVENTIS-2012SA086882

PATIENT
  Age: 62 Year
  Sex: Male
  Weight: 86 kg

DRUGS (6)
  1. LASIX [Suspect]
     Indication: POLYURIA
     Route: 048
     Dates: start: 2011
  2. TAMSULOSIN HYDROCHLORIDE [Suspect]
     Indication: PROSTATOMEGALY
  3. METFORMIN [Concomitant]
     Indication: DIABETES MELLITUS
  4. GABAPENTIN [Concomitant]
     Indication: SENSORY LOSS
  5. NIASPAN [Concomitant]
     Indication: BLOOD CHOLESTEROL ABNORMAL
  6. PLAVIX [Concomitant]
     Indication: THROMBOSIS PROPHYLAXIS

REACTIONS (3)
  - Hypertonic bladder [Unknown]
  - Dysuria [Recovering/Resolving]
  - Burning sensation [Unknown]
